FAERS Safety Report 5051123-8 (Version None)
Quarter: 2006Q3

REPORT INFORMATION
  Report Type: 
  Country: None (occurrence: None)
  Receive Date: 20060714
  Receipt Date: 20060703
  Transmission Date: 20061208
  Serious: Yes (Other)
  Sender: FDA-Public Use
  Company Number: JP-JNJFOC-20060403610

PATIENT
  Sex: Female

DRUGS (1)
  1. ITRACONAZOLE [Suspect]
     Indication: NAIL TINEA
     Route: 048
     Dates: start: 20060320, end: 20060320

REACTIONS (3)
  - MELAENA [None]
  - STOMACH DISCOMFORT [None]
  - TOXIC EPIDERMAL NECROLYSIS [None]
